FAERS Safety Report 8200864-X (Version None)
Quarter: 2012Q1

REPORT INFORMATION
  Report Type: 
  Country: None (occurrence: None)
  Receive Date: 20120312
  Receipt Date: 20110602
  Transmission Date: 20120608
  Serious: No
  Sender: FDA-Public Use
  Company Number: US-ABBOTT-11P-163-0730589-00

PATIENT
  Sex: Female
  Weight: 90.8 kg

DRUGS (4)
  1. CLARITIN-D [Concomitant]
     Indication: HYPERSENSITIVITY
  2. LUPRON DEPOT [Suspect]
     Indication: DYSMENORRHOEA
     Route: 030
     Dates: start: 20101101
  3. ADVAIR DISKUS 100/50 [Concomitant]
     Indication: HYPERSENSITIVITY
  4. NORETHINDRONE [Concomitant]
     Indication: DYSMENORRHOEA

REACTIONS (1)
  - ARTHRALGIA [None]
